FAERS Safety Report 19059455 (Version 1)
Quarter: 2021Q1

REPORT INFORMATION
  Report Type: Spontaneous
  Country: US (occurrence: US)
  Receive Date: 20210325
  Receipt Date: 20210325
  Transmission Date: 20210420
  Serious: No
  Sender: FDA-Public Use
  Company Number: US-ELI_LILLY_AND_COMPANY-US202102012651

PATIENT
  Sex: Female

DRUGS (2)
  1. BASAGLAR [Suspect]
     Active Substance: INSULIN GLARGINE
     Indication: DIABETES MELLITUS
     Dosage: 19 U, DAILY
     Route: 058
     Dates: start: 202010
  2. NOVOLOG [Concomitant]
     Active Substance: INSULIN ASPART
     Indication: DIABETES MELLITUS

REACTIONS (6)
  - Drug ineffective [Unknown]
  - Vertigo [Not Recovered/Not Resolved]
  - Cataract [Unknown]
  - Sleep disorder due to a general medical condition [Unknown]
  - Decreased interest [Unknown]
  - Diabetes mellitus inadequate control [Not Recovered/Not Resolved]
